FAERS Safety Report 7609076-1 (Version None)
Quarter: 2011Q3

REPORT INFORMATION
  Report Type: 
  Country: None (occurrence: None)
  Receive Date: 20110714
  Receipt Date: 20110711
  Transmission Date: 20111222
  Serious: Yes (Hospitalization, Other)
  Sender: FDA-Public Use
  Company Number: US-PFIZER INC-2011138387

PATIENT
  Sex: Male
  Weight: 83.9 kg

DRUGS (5)
  1. DILANTIN-125 [Suspect]
     Dosage: 300 MG, 1X/DAY
  2. DILANTIN-125 [Suspect]
     Dosage: 600 MG, 1X/DAY
  3. DILANTIN-125 [Suspect]
     Indication: CONVULSION
     Dosage: 100 MG, UNK
  4. DILANTIN-125 [Suspect]
     Dosage: 800 MG, 1X/DAY
  5. VIAGRA [Concomitant]
     Indication: ERECTILE DYSFUNCTION
     Dosage: UNK

REACTIONS (5)
  - CONVULSION [None]
  - LOSS OF CONSCIOUSNESS [None]
  - TOXICITY TO VARIOUS AGENTS [None]
  - WEIGHT DECREASED [None]
  - ANTICONVULSANT DRUG LEVEL INCREASED [None]
